FAERS Safety Report 23380753 (Version 1)
Quarter: 2024Q1

REPORT INFORMATION
  Report Type: Spontaneous
  Country: FR (occurrence: FR)
  Receive Date: 20240109
  Receipt Date: 20240109
  Transmission Date: 20240410
  Serious: Yes (Other)
  Sender: FDA-Public Use
  Company Number: None

PATIENT
  Age: 51 Year
  Sex: Female

DRUGS (2)
  1. ZOLPIDEM TARTRATE [Suspect]
     Active Substance: ZOLPIDEM TARTRATE
     Dosage: 1 IN THE EVENING
     Route: 048
     Dates: start: 2012
  2. PRAZEPAM [Suspect]
     Active Substance: PRAZEPAM
     Dosage: 10 MG-10 MG-15 MG
     Route: 048
     Dates: start: 2012

REACTIONS (1)
  - Drug use disorder [Not Recovered/Not Resolved]
